FAERS Safety Report 21435665 (Version 1)
Quarter: 2022Q4

REPORT INFORMATION
  Report Type: Spontaneous
  Country: US (occurrence: US)
  Receive Date: 20221010
  Receipt Date: 20221010
  Transmission Date: 20230113
  Serious: No
  Sender: FDA-Public Use
  Company Number: US-PFIZER INC-202201210432

PATIENT
  Age: 80 Year
  Sex: Male
  Weight: 73.03 kg

DRUGS (2)
  1. VYNDAMAX [Suspect]
     Active Substance: TAFAMIDIS
     Dosage: 61 MG
     Dates: start: 202112
  2. FUROSEMIDE [Concomitant]
     Active Substance: FUROSEMIDE
     Indication: Diuretic therapy
     Dosage: 20 MG, 1X/DAY
     Route: 048
     Dates: start: 202110

REACTIONS (3)
  - Hyperphagia [Unknown]
  - Weight increased [Unknown]
  - Fatigue [Unknown]
